FAERS Safety Report 6108207-2 (Version None)
Quarter: 2009Q1

REPORT INFORMATION
  Report Type: 
  Country: None (occurrence: None)
  Receive Date: 20090309
  Receipt Date: 20090304
  Transmission Date: 20090719
  Serious: Yes (Death)
  Sender: FDA-Public Use
  Company Number: FR-BRISTOL-MYERS SQUIBB COMPANY-14531016

PATIENT
  Age: 73 Year
  Sex: Male

DRUGS (10)
  1. CISPLATIN [Suspect]
     Indication: GASTRIC CANCER
     Dosage: TOTAL DAILY DOSAGE = 40MG
     Dates: start: 20070308
  2. EPIRUBICIN [Suspect]
     Indication: GASTRIC CANCER
     Dosage: TOTAL DALIY DOSE = 50MG
     Dates: start: 20070308
  3. CAPECITABINE [Suspect]
     Indication: GASTRIC CANCER
     Dosage: TOTAL DAILY DOSE = 2000MG
  4. SOLUPRED [Concomitant]
     Dates: start: 20070309, end: 20070315
  5. ZOPHREN [Concomitant]
     Dates: start: 20070309, end: 20070315
  6. GRANOCYTE [Concomitant]
     Dates: start: 20070311, end: 20070317
  7. FERROUS SULFATE + FOLIC ACID [Concomitant]
  8. MOPRAL [Concomitant]
  9. PRIMPERAN [Concomitant]
  10. ARANESP [Concomitant]

REACTIONS (1)
  - SUDDEN DEATH [None]
